FAERS Safety Report 8270490 (Version 3)
Quarter: 2014Q3

REPORT INFORMATION
  Report Type: Report from Study
  Country: CN (occurrence: CN)
  Receive Date: 20111201
  Receipt Date: 20140805
  Transmission Date: 20150326
  Serious: Yes (Death)
  Sender: FDA-Public Use
  Company Number: CN-ROCHE-1017400

PATIENT
  Sex: Male

DRUGS (8)
  1. PROSTAGLANDIN E [Concomitant]
     Indication: PROPHYLAXIS
  2. HEPARIN LMW [Concomitant]
     Active Substance: UNSPECIFIED INGREDIENT
     Indication: PROPHYLAXIS
  3. ADEFOVIR DIPIVOXIL. [Concomitant]
     Active Substance: ADEFOVIR DIPIVOXIL
     Indication: PROPHYLAXIS
  4. MYCOPHENOLATE MOFETIL. [Suspect]
     Active Substance: MYCOPHENOLATE MOFETIL
     Indication: ORGAN TRANSPLANT
     Route: 048
  5. TACROLIMUS. [Concomitant]
     Active Substance: TACROLIMUS
     Indication: ORGAN TRANSPLANT
  6. IMMUNOGLOBULIN ANTI-HEPATITIS B [Concomitant]
     Indication: PROPHYLAXIS
  7. BASILIXIMAB [Concomitant]
     Active Substance: BASILIXIMAB
     Indication: ORGAN TRANSPLANT
     Route: 065
  8. METHYLPREDNISOLONE [Concomitant]
     Active Substance: METHYLPREDNISOLONE
     Indication: ORGAN TRANSPLANT

REACTIONS (2)
  - Infection [Fatal]
  - Multi-organ failure [Fatal]
